FAERS Safety Report 6237724-X (Version None)
Quarter: 2009Q2

REPORT INFORMATION
  Report Type: 
  Country: None (occurrence: None)
  Receive Date: 20090617
  Receipt Date: 20090603
  Transmission Date: 20091009
  Serious: Yes (Disabling)
  Sender: FDA-Public Use
  Company Number: 2009AL003870

PATIENT
  Age: 79 Year
  Sex: Female

DRUGS (5)
  1. DOXAZOSIN MESYLATE [Suspect]
     Indication: HYPERTENSION
     Dosage: 2 MG; PO
     Route: 048
     Dates: start: 20080924, end: 20081112
  2. ATORVASTATIN CALCIUM [Concomitant]
  3. RAMIPRIL [Concomitant]
  4. CORACTEN [Concomitant]
  5. BENDROFLUAZIDE [Concomitant]

REACTIONS (1)
  - DYSPNOEA EXERTIONAL [None]
